FAERS Safety Report 14185857 (Version 1)
Quarter: 2017Q4

REPORT INFORMATION
  Report Type: Spontaneous
  Country: US (occurrence: US)
  Receive Date: 20171114
  Receipt Date: 20171114
  Transmission Date: 20180321
  Serious: Yes (Hospitalization, Other)
  Sender: FDA-Public Use
  Company Number: US-EMD SERONO-7135076

PATIENT
  Age: 55 Year
  Sex: Female

DRUGS (2)
  1. REBIF [Suspect]
     Active Substance: INTERFERON BETA-1A
     Route: 058
     Dates: start: 20170508
  2. REBIF [Suspect]
     Active Substance: INTERFERON BETA-1A
     Indication: MULTIPLE SCLEROSIS
     Route: 058
     Dates: start: 20041002, end: 201204

REACTIONS (5)
  - Multiple sclerosis relapse [Unknown]
  - Female genital tract fistula [Unknown]
  - Rectocele [Unknown]
  - Cystocele [Unknown]
  - Uterine disorder [Unknown]

NARRATIVE: CASE EVENT DATE: 201101
